FAERS Safety Report 17065334 (Version 1)
Quarter: 2019Q4

REPORT INFORMATION
  Report Type: Spontaneous
  Country: ES (occurrence: ES)
  Receive Date: 20191122
  Receipt Date: 20191122
  Transmission Date: 20200122
  Serious: Yes (Other)
  Sender: FDA-Public Use
  Company Number: ES-MYLANLABS-2019M1077974

PATIENT
  Age: 63 Year
  Sex: Female

DRUGS (2)
  1. IMATINIB. [Suspect]
     Active Substance: IMATINIB MESYLATE
     Indication: CHRONIC MYELOID LEUKAEMIA
     Dosage: UNK
     Route: 065
  2. NAPROXEN                           /00256202/ [Suspect]
     Active Substance: NAPROXEN SODIUM
     Indication: BLISTER
     Dosage: 220 MILLIGRAM, PRN
     Route: 065

REACTIONS (4)
  - Blister [Unknown]
  - Skin fragility [Unknown]
  - Dermatitis [Unknown]
  - Pseudoporphyria [Unknown]
